FAERS Safety Report 7942011-5 (Version None)
Quarter: 2011Q4

REPORT INFORMATION
  Report Type: 
  Country: None (occurrence: None)
  Receive Date: 20111128
  Receipt Date: 20111115
  Transmission Date: 20120403
  Serious: No
  Sender: FDA-Public Use
  Company Number: US-ELI_LILLY_AND_COMPANY-US201106001637

PATIENT
  Sex: Female

DRUGS (8)
  1. FENTANYL-100 [Concomitant]
     Indication: PAIN
     Dosage: 50 UG, UNK
  2. FENTANYL-100 [Concomitant]
     Dosage: 25 UG, UNK
  3. FORTEO [Suspect]
     Indication: OSTEOPOROSIS
     Dosage: 20 UG, QD
     Dates: start: 20110524
  4. FORTEO [Suspect]
     Dosage: 20 UG, QD
  5. DARVON [Concomitant]
  6. CODEINE SULFATE [Concomitant]
  7. GLUCOPHAGE [Concomitant]
  8. IBUPROFEN [Concomitant]

REACTIONS (12)
  - WEIGHT DECREASED [None]
  - NAUSEA [None]
  - PATHOLOGICAL FRACTURE [None]
  - HEADACHE [None]
  - ARTHRALGIA [None]
  - PAIN [None]
  - DIARRHOEA [None]
  - BONE PAIN [None]
  - PERIARTHRITIS [None]
  - MALAISE [None]
  - NAIL DISORDER [None]
  - VOMITING [None]
